FAERS Safety Report 23860311 (Version 3)
Quarter: 2024Q2

REPORT INFORMATION
  Report Type: Report from Study
  Country: PT (occurrence: PT)
  Receive Date: 20240515
  Receipt Date: 20240606
  Transmission Date: 20240716
  Serious: Yes (Other)
  Sender: FDA-Public Use
  Company Number: PT-ABBVIE-5759202

PATIENT
  Age: 71 Year
  Sex: Female

DRUGS (11)
  1. CARBIDOPA\LEVODOPA [Suspect]
     Active Substance: CARBIDOPA\LEVODOPA
     Indication: Multiple system atrophy
     Dosage: 20 MG + 5 MG?LAST ADMIN DATE: 2024?FREQUENCY TEXT: MORN:5.8CC;MAINT:2CC/H;EXTR:0.5CC
     Route: 050
     Dates: start: 20240221, end: 2024
  2. CARBIDOPA\LEVODOPA [Suspect]
     Active Substance: CARBIDOPA\LEVODOPA
     Dosage: 20 MG + 5 MG?FREQUENCY TEXT: MORN:5.8CC;MAINT:2.1CC/H;EXTR:0.5CC
     Route: 050
     Dates: start: 202404, end: 20240518
  3. CARBIDOPA\LEVODOPA [Suspect]
     Active Substance: CARBIDOPA\LEVODOPA
     Dosage: 20 MG + 5 MG?FREQUENCY TEXT: MORN:3CC;MAINT:0.9CC/H;EXTR:0.5CC?FIRST ADMIN DATE: 2024
     Route: 050
     Dates: end: 202404
  4. CARBIDOPA\LEVODOPA [Suspect]
     Active Substance: CARBIDOPA\LEVODOPA
     Dosage: 20 MG + 5 MG?FREQUENCY TEXT: MORN:5.8CC;MAINT:3.4CC/H;EXTR:0.5CC
     Route: 050
     Dates: start: 20240518
  5. DOMPERIDONE [Concomitant]
     Active Substance: DOMPERIDONE
     Indication: Product used for unknown indication
     Dosage: 1 TABLET?FORM STRENGTH: 10 MILLIGRAM?FREQUENCY TEXT: AT LUNCH?START DATE TEXT: BEFORE DUODOPA
     Route: 048
  6. AMITRIPTYLINE [Concomitant]
     Active Substance: AMITRIPTYLINE
     Indication: Product used for unknown indication
     Dosage: 2 TABLET?FORM STRENGTH: 10 MILLIGRAM?FREQUENCY TEXT: AT DINNER?START DATE TEXT: BEFORE DUODOPA
     Route: 048
  7. EZETIMIBE\ROSUVASTATIN [Concomitant]
     Active Substance: EZETIMIBE\ROSUVASTATIN
     Indication: Dyslipidaemia
     Dosage: 20/10MG?FREQUENCY TEXT: 1 TABLET AT DINNER?START DATE TEXT: BEFORE DUODOPA
     Route: 048
  8. ASPIRIN [Concomitant]
     Active Substance: ASPIRIN
     Indication: Product used for unknown indication
     Dosage: 1 TABLET?FORM STRENGTH: 100 MILLIGRAM?FREQUENCY TEXT: AT LUNCH?START DATE TEXT: BEFORE DUODOPA
     Route: 048
  9. Furadantina [Concomitant]
     Indication: Urinary tract infection
     Dosage: 1 TABLET?FORM STRENGTH: 100 MILLIGRAM?FREQUENCY TEXT: AT DINNER?START DATE TEXT: BEFORE DUODOPA
     Route: 048
  10. METFORMIN [Concomitant]
     Active Substance: METFORMIN HYDROCHLORIDE
     Indication: Type 2 diabetes mellitus
     Dosage: 1 TABLET?FORM STRENGTH: 500 MILLIGRAM?FREQUENCY TEXT: AT DINNER?START DATE TEXT: BEFORE DUODOPA
     Route: 048
  11. METFORMIN [Concomitant]
     Active Substance: METFORMIN HYDROCHLORIDE
     Indication: Type 2 diabetes mellitus
     Dosage: FORM STRENGTH: 850 MILLIGRAM?FREQUENCY TEXT: IN THE MORNING?START DATE TEXT: BEFORE DUODOPA

REACTIONS (2)
  - Urinary tract infection [Recovered/Resolved]
  - Communication disorder [Recovered/Resolved]

NARRATIVE: CASE EVENT DATE: 20240501
